FAERS Safety Report 18140642 (Version 1)
Quarter: 2020Q3

REPORT INFORMATION
  Report Type: Spontaneous
  Country: FR (occurrence: FR)
  Receive Date: 20200812
  Receipt Date: 20200812
  Transmission Date: 20201103
  Serious: Yes (Other)
  Sender: FDA-Public Use
  Company Number: FR-MYLANLABS-2020M1070901

PATIENT
  Age: 46 Year
  Sex: Male

DRUGS (12)
  1. PREDNISONE. [Suspect]
     Active Substance: PREDNISONE
     Indication: SCLERITIS
     Dosage: 25 MILLIGRAM, QD
     Route: 048
  2. AZATHIOPRINE. [Suspect]
     Active Substance: AZATHIOPRINE
     Indication: SCLERITIS
  3. AZATHIOPRINE. [Suspect]
     Active Substance: AZATHIOPRINE
     Indication: AURICULAR CHONDRITIS
  4. TOCILIZUMAB. [Concomitant]
     Active Substance: TOCILIZUMAB
     Indication: POLYCHONDRITIS
     Dosage: 8 MILLIGRAM/KILOGRAM, MONTHLY, PERFUSION
  5. TOCILIZUMAB. [Concomitant]
     Active Substance: TOCILIZUMAB
     Indication: AURICULAR CHONDRITIS
  6. PREDNISONE. [Suspect]
     Active Substance: PREDNISONE
     Dosage: DOSE OF PREDNISONE WAS DECREASED TO 25 MG/DAY
     Route: 048
  7. PREDNISONE. [Suspect]
     Active Substance: PREDNISONE
     Dosage: PREDNISONE WAS TAPERED AND DISCONTINUED 14 MONTHS LATER
     Route: 065
  8. TOCILIZUMAB. [Concomitant]
     Active Substance: TOCILIZUMAB
     Indication: SCLERITIS
     Dosage: TREATMENT CONTINUED AT A REDUCED FREQUENCY ,
  9. PREDNISONE. [Suspect]
     Active Substance: PREDNISONE
     Indication: POLYCHONDRITIS
     Dosage: 80 MILLIGRAM, QD; INITIAL DOSE; GRADUALLY TAPERED
     Route: 048
  10. PREDNISONE. [Suspect]
     Active Substance: PREDNISONE
     Indication: AURICULAR CHONDRITIS
     Dosage: DOSE INCREASED DUE TO REBOUND EFFECT
     Route: 048
  11. AZATHIOPRINE. [Suspect]
     Active Substance: AZATHIOPRINE
     Indication: POLYCHONDRITIS
     Dosage: UNK
     Route: 065
  12. PREDNISONE. [Suspect]
     Active Substance: PREDNISONE
     Dosage: 50 MILLIGRAM, QD
     Route: 048

REACTIONS (4)
  - Rebound effect [Recovered/Resolved]
  - Scleritis [Recovered/Resolved]
  - Condition aggravated [Recovered/Resolved]
  - Drug ineffective [Unknown]
